FAERS Safety Report 15570564 (Version 2)
Quarter: 2018Q4

REPORT INFORMATION
  Report Type: Report from Study
  Country: GB (occurrence: GB)
  Receive Date: 20181031
  Receipt Date: 20181231
  Transmission Date: 20190205
  Serious: Yes (Hospitalization)
  Sender: FDA-Public Use
  Company Number: GB-ROCHE-2184774

PATIENT
  Age: 56 Year
  Sex: Female

DRUGS (28)
  1. EXEMESTANE. [Suspect]
     Active Substance: EXEMESTANE
     Indication: HER-2 POSITIVE BREAST CANCER
  2. CITALOPRAM [Concomitant]
     Active Substance: CITALOPRAM HYDROBROMIDE
     Route: 048
     Dates: start: 2005
  3. MORPHINE SULFATE. [Concomitant]
     Active Substance: MORPHINE SULFATE
     Route: 048
     Dates: start: 201504, end: 20160516
  4. GABAPENTIN. [Concomitant]
     Active Substance: GABAPENTIN
     Route: 048
     Dates: start: 20151231
  5. DENOSUMAB [Concomitant]
     Active Substance: DENOSUMAB
     Indication: METASTASES TO BONE
     Route: 058
     Dates: start: 20170604, end: 20170613
  6. PROMETHAZINE HYDROCHLORIDE. [Concomitant]
     Active Substance: PROMETHAZINE HYDROCHLORIDE
     Route: 048
  7. MORPHINE SULFATE. [Concomitant]
     Active Substance: MORPHINE SULFATE
     Route: 048
     Dates: start: 20171224
  8. DENOSUMAB [Concomitant]
     Active Substance: DENOSUMAB
     Route: 058
     Dates: start: 20180118
  9. DIAZEPAM. [Concomitant]
     Active Substance: DIAZEPAM
     Indication: BACK PAIN
     Route: 048
     Dates: start: 20180105
  10. MORPHINE SULFATE. [Concomitant]
     Active Substance: MORPHINE SULFATE
     Indication: BACK PAIN
     Route: 048
     Dates: start: 201504
  11. AMOXICILLIN. [Concomitant]
     Active Substance: AMOXICILLIN
     Indication: LOWER RESPIRATORY TRACT INFECTION
     Route: 048
     Dates: start: 20170701, end: 20170706
  12. CLARITHROMYCIN. [Concomitant]
     Active Substance: CLARITHROMYCIN
     Indication: LOWER RESPIRATORY TRACT INFECTION
     Route: 048
     Dates: start: 20180701, end: 20180711
  13. PEPTAC (UNITED KINGDOM) [Concomitant]
     Route: 048
  14. VITAMIN D3 [Concomitant]
     Active Substance: CHOLECALCIFEROL
     Indication: BONE DISORDER
     Route: 048
     Dates: start: 20150827
  15. DIAZEPAM. [Concomitant]
     Active Substance: DIAZEPAM
     Indication: MUSCULOSKELETAL STIFFNESS
  16. LETROZOLE. [Suspect]
     Active Substance: LETROZOLE
     Indication: HER-2 POSITIVE BREAST CANCER
     Route: 048
     Dates: start: 201507, end: 20170427
  17. LANSOPRAZOLE. [Concomitant]
     Active Substance: LANSOPRAZOLE
     Route: 048
     Dates: start: 2001
  18. ZOMORPH [Concomitant]
     Active Substance: MORPHINE SULFATE
     Indication: PAIN
     Route: 048
     Dates: start: 201611
  19. ZOMORPH [Concomitant]
     Active Substance: MORPHINE SULFATE
     Indication: METASTATIC NEOPLASM
  20. AMOXICILLIN. [Concomitant]
     Active Substance: AMOXICILLIN
     Route: 048
     Dates: start: 20180701, end: 20180711
  21. TRASTUZUMAB. [Suspect]
     Active Substance: TRASTUZUMAB
     Indication: HER-2 POSITIVE BREAST CANCER
  22. LISINOPRIL. [Concomitant]
     Active Substance: LISINOPRIL
     Indication: EJECTION FRACTION DECREASED
     Route: 048
     Dates: start: 20161110
  23. TRASTUZUMAB. [Suspect]
     Active Substance: TRASTUZUMAB
     Indication: HER-2 POSITIVE BREAST CANCER
     Route: 058
     Dates: start: 20150716, end: 20171222
  24. LETROZOLE. [Suspect]
     Active Substance: LETROZOLE
     Indication: HER-2 POSITIVE BREAST CANCER
  25. PARACETAMOL [Concomitant]
     Active Substance: ACETAMINOPHEN
     Route: 048
     Dates: start: 201504
  26. CYCLIZINE [Concomitant]
     Active Substance: CYCLIZINE
     Route: 048
     Dates: start: 201507
  27. EXEMESTANE. [Suspect]
     Active Substance: EXEMESTANE
     Indication: HER-2 POSITIVE BREAST CANCER
     Route: 048
     Dates: start: 20170428, end: 20180110
  28. MORPHINE SULFATE. [Concomitant]
     Active Substance: MORPHINE SULFATE
     Route: 048
     Dates: start: 20150516, end: 201611

REACTIONS (3)
  - Cellulitis [Recovered/Resolved]
  - Haemoptysis [Not Recovered/Not Resolved]
  - Pyrexia [Not Recovered/Not Resolved]

NARRATIVE: CASE EVENT DATE: 20180727
